FAERS Safety Report 6715941-X (Version None)
Quarter: 2010Q2

REPORT INFORMATION
  Report Type: 
  Country: None (occurrence: None)
  Receive Date: 20100426
  Receipt Date: 20091204
  Transmission Date: 20101027
  Serious: Yes (Other)
  Sender: FDA-Public Use
  Company Number: 2009BI026326

PATIENT
  Age: 42 Year
  Sex: Female

DRUGS (4)
  1. TYSABRI [Suspect]
     Indication: MULTIPLE SCLEROSIS
     Dosage: 300 MG;QM;IV
     Route: 042
     Dates: start: 20090720, end: 20090720
  2. AVONEX [Concomitant]
  3. NOVANTRONE [Concomitant]
  4. REBIF [Concomitant]

REACTIONS (4)
  - CORNEAL SCAR [None]
  - HERPES ZOSTER OPHTHALMIC [None]
  - MULTIPLE SCLEROSIS [None]
  - VISION BLURRED [None]
